FAERS Safety Report 4780053-1 (Version None)
Quarter: 2005Q3

REPORT INFORMATION
  Report Type: 
  Country: None (occurrence: None)
  Receive Date: 20050914
  Receipt Date: 20050706
  Transmission Date: 20060218
  Serious: Yes (Life-Threatening, Other)
  Sender: FDA-Public Use
  Company Number: 163-20785-05070097

PATIENT

DRUGS (3)
  1. THALOMID [Suspect]
     Indication: HEPATIC NEOPLASM MALIGNANT
     Dosage: 200MG TITRATE UPWARD X200MG Q 2 WKS., QHS, ORAL
     Route: 048
     Dates: start: 20010319
  2. DOXORUBICIN HCL [Suspect]
     Indication: HEPATIC NEOPLASM MALIGNANT
     Dosage: 100 MG, INTRA-ARTERIAL
     Route: 013
  3. AVITENE [Suspect]
     Indication: HEPATIC NEOPLASM MALIGNANT

REACTIONS (8)
  - ALANINE AMINOTRANSFERASE INCREASED [None]
  - ARRHYTHMIA SUPRAVENTRICULAR [None]
  - ASPARTATE AMINOTRANSFERASE INCREASED [None]
  - BLOOD ALKALINE PHOSPHATASE INCREASED [None]
  - COORDINATION ABNORMAL [None]
  - FATIGUE [None]
  - HYPOTENSION [None]
  - VISCERAL ARTERIAL ISCHAEMIA [None]
